FAERS Safety Report 15122395 (Version 1)
Quarter: 2018Q3

REPORT INFORMATION
  Report Type: Spontaneous
  Country: JP (occurrence: JP)
  Receive Date: 20180709
  Receipt Date: 20180709
  Transmission Date: 20181010
  Serious: Yes (Other)
  Sender: FDA-Public Use
  Company Number: JP-GILEAD-2018-0348667

PATIENT
  Age: 61 Year
  Sex: Female

DRUGS (4)
  1. HARVONI [Suspect]
     Active Substance: LEDIPASVIR\SOFOSBUVIR
     Indication: HEPATITIS C
     Dosage: 3 DF, QD
     Route: 048
  2. SUPACAL [Concomitant]
  3. HARVONI [Suspect]
     Active Substance: LEDIPASVIR\SOFOSBUVIR
     Dosage: UNK
     Route: 048
     Dates: start: 201703, end: 201805
  4. ALDACTONE [Concomitant]
     Active Substance: SPIRONOLACTONE

REACTIONS (35)
  - Myocardial infarction [Recovered/Resolved]
  - Erythema of eyelid [Not Recovered/Not Resolved]
  - Headache [Unknown]
  - Gastric disorder [Unknown]
  - Dizziness [Unknown]
  - Skin discolouration [Unknown]
  - Oedema peripheral [Unknown]
  - Cryoglobulinaemia [Unknown]
  - Dry eye [Not Recovered/Not Resolved]
  - Haematuria [Unknown]
  - Headache [Not Recovered/Not Resolved]
  - Pain in extremity [Unknown]
  - Overdose [Recovered/Resolved]
  - Eye pain [Not Recovered/Not Resolved]
  - Cardiac disorder [Unknown]
  - Diarrhoea [Unknown]
  - Back pain [Not Recovered/Not Resolved]
  - Nausea [Recovered/Resolved]
  - Skin swelling [Unknown]
  - Retinal haemorrhage [Not Recovered/Not Resolved]
  - Tremor [Unknown]
  - Blood glucose increased [Unknown]
  - Headache [Unknown]
  - Dizziness [Unknown]
  - Internal haemorrhage [Unknown]
  - Dyspnoea [Recovered/Resolved]
  - Breast enlargement [Unknown]
  - Generalised oedema [Unknown]
  - Amylase increased [Unknown]
  - Dizziness postural [Not Recovered/Not Resolved]
  - Pruritus [Recovered/Resolved]
  - Swelling [Unknown]
  - Jaundice [Unknown]
  - Alopecia [Unknown]
  - Abdominal distension [Unknown]

NARRATIVE: CASE EVENT DATE: 201703
